FAERS Safety Report 7955300 (Version 2)
Quarter: 2013Q2

REPORT INFORMATION
  Report Type: Spontaneous
  Country: US (occurrence: US)
  Receive Date: 20110523
  Receipt Date: 20130528
  Transmission Date: 20140414
  Serious: Yes (Congenital Anomaly, Other)
  Sender: FDA-Public Use
  Company Number: US-PFIZER INC-2011105863

PATIENT
  Sex: Female
  Weight: 4 kg

DRUGS (2)
  1. EFFEXOR XR [Suspect]
     Dosage: 150 MG, 1X/DAY
     Route: 064
     Dates: start: 2003
  2. FIORICET [Concomitant]
     Dosage: ^50-325-40^ ONE TABLET EVERY FOUR HOURS AS NEEDED NOT TO EXCEED SIX TABLETS PER 24HRS
     Route: 064

REACTIONS (5)
  - Foetal exposure during pregnancy [Unknown]
  - Pulmonary valve stenosis [Unknown]
  - Atrial septal defect [Unknown]
  - Umbilical cord abnormality [Unknown]
  - Large for dates baby [Unknown]
